FAERS Safety Report 21596579 (Version 2)
Quarter: 2022Q4

REPORT INFORMATION
  Report Type: Spontaneous
  Country: US (occurrence: US)
  Receive Date: 20221115
  Receipt Date: 20221117
  Transmission Date: 20230113
  Serious: No
  Sender: FDA-Public Use
  Company Number: US-PFIZER INC-202201300082

PATIENT
  Age: 52 Year
  Sex: Male
  Weight: 81.65 kg

DRUGS (3)
  1. PAXLOVID [Suspect]
     Active Substance: NIRMATRELVIR\RITONAVIR
     Indication: COVID-19 treatment
     Dosage: 300MG AND 100MG, 2X/DAY (MORNING DOSE AND NIGHT DOSE)
     Dates: start: 20221111, end: 20221113
  2. METFORMIN [Concomitant]
     Active Substance: METFORMIN HYDROCHLORIDE
     Indication: Glucose tolerance impaired
     Dosage: 500 MG
  3. LISINOPRIL [Concomitant]
     Active Substance: LISINOPRIL
     Dosage: LOWEST DOSE

REACTIONS (9)
  - Palpitations [Unknown]
  - Dyspnoea [Unknown]
  - Insomnia [Unknown]
  - Mental fatigue [Unknown]
  - Heart rate increased [Unknown]
  - Nausea [Unknown]
  - Throat irritation [Unknown]
  - Feeling abnormal [Unknown]
  - Fatigue [Unknown]

NARRATIVE: CASE EVENT DATE: 20221101
